FAERS Safety Report 16711805 (Version 4)
Quarter: 2019Q4

REPORT INFORMATION
  Report Type: Spontaneous
  Country: US (occurrence: US)
  Receive Date: 20190816
  Receipt Date: 20191206
  Transmission Date: 20200122
  Serious: Yes (Hospitalization, Other)
  Sender: FDA-Public Use
  Company Number: US-SA-2019SA225892

PATIENT
  Age: 78 Year
  Sex: Female

DRUGS (19)
  1. PRALUENT [Suspect]
     Active Substance: ALIROCUMAB
     Indication: TYPE V HYPERLIPIDAEMIA
     Dosage: 150 MG, QOW
     Route: 058
     Dates: start: 20180531
  2. CALCIUM [Concomitant]
     Active Substance: CALCIUM
  3. INDERAL [Concomitant]
     Active Substance: PROPRANOLOL HYDROCHLORIDE
  4. PROCARDIA [Concomitant]
     Active Substance: NIFEDIPINE
  5. GABAPENTIN. [Concomitant]
     Active Substance: GABAPENTIN
  6. XALATAN [Concomitant]
     Active Substance: LATANOPROST
  7. IMDUR [Concomitant]
     Active Substance: ISOSORBIDE MONONITRATE
  8. CODEINE [Concomitant]
     Active Substance: CODEINE
  9. COLACE [Concomitant]
     Active Substance: DOCUSATE SODIUM
  10. FUROSEMIDE. [Concomitant]
     Active Substance: FUROSEMIDE
  11. LEVOTHYROXIN [Concomitant]
     Active Substance: LEVOTHYROXINE
  12. PROTONIX [OMEPRAZOLE] [Concomitant]
     Active Substance: OMEPRAZOLE
  13. RANEXA [Concomitant]
     Active Substance: RANOLAZINE
  14. VALSARTAN. [Concomitant]
     Active Substance: VALSARTAN
  15. HYDROCODONE [Concomitant]
     Active Substance: HYDROCODONE
  16. TYLENOL [Concomitant]
     Active Substance: ACETAMINOPHEN
  17. ASPIRIN [ACETYLSALICYLIC ACID] [Concomitant]
     Active Substance: ASPIRIN
  18. SODIUM BICARBONATE. [Concomitant]
     Active Substance: SODIUM BICARBONATE
  19. PLAVIX [Concomitant]
     Active Substance: CLOPIDOGREL BISULFATE

REACTIONS (4)
  - Coronary artery occlusion [Unknown]
  - Cellulitis [Unknown]
  - Coronary artery surgery [Unknown]
  - Atherectomy [Unknown]
